FAERS Safety Report 16783082 (Version 1)
Quarter: 2019Q3

REPORT INFORMATION
  Report Type: Spontaneous
  Country: ES (occurrence: ES)
  Receive Date: 20190906
  Receipt Date: 20190906
  Transmission Date: 20191005
  Serious: Yes (Other)
  Sender: FDA-Public Use
  Company Number: ES-AUROBINDO-AUR-APL-2019-058084

PATIENT

DRUGS (2)
  1. OLANZAPINE. [Suspect]
     Active Substance: OLANZAPINE
     Indication: BIPOLAR DISORDER
     Dosage: UNK, 1 (TRIMESTER)
     Route: 064
  2. LITHIUM CARBONATE. [Suspect]
     Active Substance: LITHIUM CARBONATE
     Indication: BIPOLAR DISORDER
     Dosage: 1200 MILLIGRAM, ONCE A DAY, 1 (TRIMESTER)
     Route: 064

REACTIONS (3)
  - Floppy infant [Recovered/Resolved]
  - False positive investigation result [Recovered/Resolved]
  - Poor feeding infant [Recovered/Resolved]
